FAERS Safety Report 23153310 (Version 2)
Quarter: 2023Q4

REPORT INFORMATION
  Report Type: Spontaneous
  Country: IL (occurrence: IL)
  Receive Date: 20231107
  Receipt Date: 20231127
  Transmission Date: 20240110
  Serious: Yes (Hospitalization, Other)
  Sender: FDA-Public Use
  Company Number: IL-BAYER-2023A154393

PATIENT
  Age: 65 Year
  Sex: Male

DRUGS (1)
  1. KERENDIA [Suspect]
     Active Substance: FINERENONE
     Dosage: UNK
     Dates: start: 202308

REACTIONS (3)
  - Syncope [None]
  - Blood potassium decreased [None]
  - Hyperkalaemia [None]

NARRATIVE: CASE EVENT DATE: 20231001
